FAERS Safety Report 23230404 (Version 1)
Quarter: 2023Q4

REPORT INFORMATION
  Report Type: Spontaneous
  Country: US (occurrence: US)
  Receive Date: 20231127
  Receipt Date: 20231127
  Transmission Date: 20240109
  Serious: No
  Sender: FDA-Public Use
  Company Number: US-002147023-NVSC2023US190491

PATIENT
  Sex: Female

DRUGS (5)
  1. AMITRIPTYLINE [Suspect]
     Active Substance: AMITRIPTYLINE
     Indication: Hidradenitis
     Dosage: UNK
     Route: 059
  2. COSENTYX [Suspect]
     Active Substance: SECUKINUMAB
     Indication: Hidradenitis
     Dosage: UNK
     Route: 059
     Dates: start: 20230427, end: 20230516
  3. METHOTREXATE [Suspect]
     Active Substance: METHOTREXATE
     Indication: Hidradenitis
     Dosage: UNK
     Route: 058
  4. METHOTREXATE [Suspect]
     Active Substance: METHOTREXATE
     Indication: Arthralgia
  5. METHOTREXATE [Suspect]
     Active Substance: METHOTREXATE
     Indication: Psoriasis

REACTIONS (11)
  - Skin haemorrhage [Unknown]
  - Treatment failure [Unknown]
  - Product use in unapproved indication [Unknown]
  - Nodule [Unknown]
  - Skin abrasion [Unknown]
  - Skin lesion [Unknown]
  - Pain of skin [Unknown]
  - Skin erosion [Unknown]
  - Scab [Unknown]
  - Psoriasis [Unknown]
  - Hidradenitis [Unknown]
